FAERS Safety Report 4980006-4 (Version None)
Quarter: 2006Q2

REPORT INFORMATION
  Report Type: 
  Country: None (occurrence: None)
  Receive Date: 20060421
  Receipt Date: 20060411
  Transmission Date: 20061013
  Serious: Yes (Hospitalization)
  Sender: FDA-Public Use
  Company Number: AU-MERCK-0604AUS00071

PATIENT
  Age: 71 Year
  Sex: Female

DRUGS (8)
  1. FOSAMAX [Suspect]
     Indication: OSTEOPOROSIS
     Route: 048
     Dates: start: 20040101, end: 20060301
  2. ATORVASTATIN CALCIUM [Concomitant]
     Indication: BLOOD CHOLESTEROL ABNORMAL
     Route: 065
  3. PERINDOPRIL ERBUMINE [Concomitant]
     Indication: BLOOD PRESSURE ABNORMAL
     Route: 065
  4. VERAPAMIL HYDROCHLORIDE [Concomitant]
     Indication: BLOOD PRESSURE ABNORMAL
     Route: 065
  5. FUROSEMIDE [Concomitant]
     Route: 065
  6. ASPIRIN [Concomitant]
     Route: 065
  7. CLOPIDOGREL BISULFATE [Concomitant]
     Indication: CEREBROVASCULAR ACCIDENT PROPHYLAXIS
     Route: 065
     Dates: start: 20040101
  8. OMEPRAZOLE MAGNESIUM [Concomitant]
     Indication: GASTROOESOPHAGEAL REFLUX DISEASE
     Route: 065
     Dates: end: 20060308

REACTIONS (5)
  - BLOOD PRESSURE INCREASED [None]
  - CHEST PAIN [None]
  - GASTROOESOPHAGEAL REFLUX DISEASE [None]
  - HEART RATE INCREASED [None]
  - NECK PAIN [None]
